FAERS Safety Report 4968831-7 (Version None)
Quarter: 2006Q2

REPORT INFORMATION
  Report Type: 
  Country: None (occurrence: None)
  Receive Date: 20060411
  Receipt Date: 20060331
  Transmission Date: 20061013
  Serious: Yes (Other)
  Sender: FDA-Public Use
  Company Number: US-JNJFOC-20060400128

PATIENT

DRUGS (1)
  1. REMICADE [Suspect]
     Indication: CROHN'S DISEASE

REACTIONS (4)
  - DIFFICULTY IN WALKING [None]
  - EOSINOPHIL COUNT INCREASED [None]
  - HYPOAESTHESIA [None]
  - NEUROPATHY PERIPHERAL [None]
